FAERS Safety Report 11172385 (Version 1)
Quarter: 2015Q2

REPORT INFORMATION
  Report Type: Spontaneous
  Country: BR (occurrence: BR)
  Receive Date: 20150608
  Receipt Date: 20150608
  Transmission Date: 20150821
  Serious: Yes (Other)
  Sender: FDA-Public Use
  Company Number: BR-PFIZER INC-2015184604

PATIENT
  Age: 83 Year
  Sex: Female
  Weight: 75 kg

DRUGS (1)
  1. LIPITOR [Suspect]
     Active Substance: ATORVASTATIN CALCIUM
     Indication: BLOOD CHOLESTEROL
     Dosage: 1 TABLET AT NIGHT
     Route: 048
     Dates: end: 2010

REACTIONS (10)
  - Pain [Not Recovered/Not Resolved]
  - Fall [Unknown]
  - Nerve injury [Unknown]
  - Drug ineffective [Unknown]
  - Breast cancer [Unknown]
  - Spinal disorder [Unknown]
  - Sleep disorder [Unknown]
  - Hypertension [Not Recovered/Not Resolved]
  - Lumbar vertebral fracture [Unknown]
  - Hypothyroidism [Not Recovered/Not Resolved]

NARRATIVE: CASE EVENT DATE: 2010
